FAERS Safety Report 8328475-6 (Version None)
Quarter: 2012Q2

REPORT INFORMATION
  Report Type: 
  Country: None (occurrence: None)
  Receive Date: 20120417
  Receipt Date: 20120403
  Transmission Date: 20120825
  Serious: Yes (Hospitalization)
  Sender: FDA-Public Use
  Company Number: 2012PROUSA01243

PATIENT
  Age: 58 Year
  Sex: Male

DRUGS (7)
  1. PROVENGE (SIPULEUCEL-T) SUSENSION [Suspect]
  2. METFORMIN HCL [Concomitant]
  3. PROVENGE (SIPULEUCEL-T) SUSENSION [Suspect]
     Indication: PROSTATE CANCER METASTATIC
     Dosage: 250 ML, SINGLE, INTRAVENOUS, 250 ML, SINGLE, INTRAVENOUS, 250 ML, SINGLE, INTRAVENOUS
     Route: 042
     Dates: start: 20120203, end: 20120203
  4. PROVENGE (SIPULEUCEL-T) SUSENSION [Suspect]
     Indication: PROSTATE CANCER METASTATIC
     Dosage: 250 ML, SINGLE, INTRAVENOUS, 250 ML, SINGLE, INTRAVENOUS, 250 ML, SINGLE, INTRAVENOUS
     Route: 042
     Dates: start: 20120224, end: 20120224
  5. PROVENGE (SIPULEUCEL-T) SUSENSION [Suspect]
     Indication: PROSTATE CANCER METASTATIC
     Dosage: 250 ML, SINGLE, INTRAVENOUS, 250 ML, SINGLE, INTRAVENOUS, 250 ML, SINGLE, INTRAVENOUS
     Route: 042
     Dates: start: 20120120, end: 20120120
  6. PROVENGE (SIPULEUCEL-T) SUSENSION [Suspect]
  7. PREDNISONE TAB [Concomitant]

REACTIONS (7)
  - PULMONARY EMBOLISM [None]
  - MITRAL VALVE INCOMPETENCE [None]
  - PULMONARY HYPERTENSION [None]
  - RIGHT VENTRICULAR HYPERTROPHY [None]
  - LYMPHADENOPATHY MEDIASTINAL [None]
  - NODAL RHYTHM [None]
  - TRICUSPID VALVE INCOMPETENCE [None]
